FAERS Safety Report 6525654-5 (Version None)
Quarter: 2010Q1

REPORT INFORMATION
  Report Type: 
  Country: None (occurrence: None)
  Receive Date: 20100104
  Receipt Date: 20091223
  Transmission Date: 20100710
  Serious: Yes (Hospitalization, Congenital Anomaly)
  Sender: FDA-Public Use
  Company Number: NL-ELI_LILLY_AND_COMPANY-NL200912005178

PATIENT
  Sex: Female
  Weight: 4 kg

DRUGS (3)
  1. ZYPREXA [Suspect]
     Dosage: 2.5 MG, UNK
     Route: 064
     Dates: start: 20080520
  2. MEPERIDINE HCL [Concomitant]
     Route: 064
  3. MORPHINE [Concomitant]

REACTIONS (3)
  - ASPHYXIA [None]
  - CONGENITAL TRACHEOMALACIA [None]
  - DRUG EXPOSURE DURING PREGNANCY [None]
